FAERS Safety Report 9122592 (Version 1)
Quarter: 2013Q1

REPORT INFORMATION
  Report Type: Spontaneous
  Country: US (occurrence: None)
  Receive Date: 20130130
  Receipt Date: 20130130
  Transmission Date: 20140127
  Serious: Yes (Death)
  Sender: FDA-Public Use
  Company Number: B0859718A

PATIENT
  Age: 38 Year
  Sex: Male

DRUGS (7)
  1. QUETIAPINE [Suspect]
     Route: 048
  2. DULOXETINE [Suspect]
     Route: 048
  3. DIPHENHYDRAMINE [Suspect]
     Route: 048
  4. LAMOTRIGINE (FORMULATION UNKNOWN) (GENERIC) (LAMOTRIGINE) [Suspect]
     Route: 048
  5. BENZODIAZEPINES [Suspect]
     Route: 048
  6. ZIPRASIDONE HCL [Suspect]
     Route: 048
  7. MIRTAZAPINE [Suspect]
     Route: 048

REACTIONS (1)
  - Completed suicide [None]
